FAERS Safety Report 6175172-1 (Version None)
Quarter: 2009Q2

REPORT INFORMATION
  Report Type: 
  Country: None (occurrence: None)
  Receive Date: 20090430
  Receipt Date: 20090120
  Transmission Date: 20091009
  Serious: No
  Sender: FDA-Public Use
  Company Number: US-ASTRAZENECA-2009UW01711

PATIENT
  Age: 69 Year
  Sex: Female

DRUGS (5)
  1. NEXIUM [Suspect]
     Indication: GASTROOESOPHAGEAL REFLUX DISEASE
     Route: 048
     Dates: start: 20080101
  2. COZAAR [Concomitant]
     Indication: HYPERTENSION
  3. LIPITOR [Concomitant]
     Indication: BLOOD CHOLESTEROL
  4. COMBI PATCH HORMON REPLACEMENT [Concomitant]
     Indication: HORMONE REPLACEMENT THERAPY
  5. ZYRTEC [Concomitant]
     Indication: HYPERSENSITIVITY

REACTIONS (4)
  - ABDOMINAL PAIN UPPER [None]
  - DIARRHOEA [None]
  - INCORRECT DOSE ADMINISTERED [None]
  - VOMITING [None]
